FAERS Safety Report 5721800-1 (Version None)
Quarter: 2008Q2

REPORT INFORMATION
  Report Type: 
  Country: None (occurrence: None)
  Receive Date: 20080429
  Receipt Date: 20070402
  Transmission Date: 20081010
  Serious: No
  Sender: FDA-Public Use
  Company Number: US-ASTRAZENECA-2007UW06551

PATIENT
  Sex: Male

DRUGS (3)
  1. NEXIUM [Suspect]
     Route: 048
  2. PRILOSEC [Suspect]
     Dosage: 3 PER DAY
     Route: 048
  3. PEPCID [Concomitant]
     Dosage: 3 PER DAY

REACTIONS (3)
  - HEART RATE INCREASED [None]
  - MALAISE [None]
  - NAUSEA [None]
